FAERS Safety Report 23124931 (Version 2)
Quarter: 2024Q1

REPORT INFORMATION
  Report Type: Spontaneous
  Country: US (occurrence: US)
  Receive Date: 20231030
  Receipt Date: 20240118
  Transmission Date: 20240409
  Serious: Yes (Other)
  Sender: FDA-Public Use
  Company Number: US-BAYER-2023A152212

PATIENT
  Age: 22 Year
  Sex: Female

DRUGS (1)
  1. KYLEENA [Suspect]
     Active Substance: LEVONORGESTREL
     Indication: Contraception
     Dosage: 17.5?G/DAY
     Route: 015
     Dates: start: 20220712, end: 20230901

REACTIONS (3)
  - Pregnancy with contraceptive device [Unknown]
  - Device dislocation [Recovered/Resolved]
  - Shortened cervix [None]

NARRATIVE: CASE EVENT DATE: 20230901
